FAERS Safety Report 18235693 (Version 1)
Quarter: 2020Q3

REPORT INFORMATION
  Report Type: Report from Study
  Country: CA (occurrence: CA)
  Receive Date: 20200905
  Receipt Date: 20200905
  Transmission Date: 20201103
  Serious: Yes (Hospitalization)
  Sender: FDA-Public Use
  Company Number: CA-ACCORD-199323

PATIENT
  Age: 45 Year
  Sex: Female

DRUGS (8)
  1. CITALOPRAM [Suspect]
     Active Substance: CITALOPRAM HYDROBROMIDE
     Indication: MIGRAINE
     Route: 065
  2. BRIVLERA [Concomitant]
     Active Substance: BRIVARACETAM
     Indication: PRODUCT USED FOR UNKNOWN INDICATION
     Route: 065
  3. CLOBAZAM. [Concomitant]
     Active Substance: CLOBAZAM
     Indication: PRODUCT USED FOR UNKNOWN INDICATION
     Route: 065
  4. LAMOTRIGINE. [Concomitant]
     Active Substance: LAMOTRIGINE
     Indication: PRODUCT USED FOR UNKNOWN INDICATION
     Route: 065
  5. AIMOVIG [Suspect]
     Active Substance: ERENUMAB-AOOE
     Indication: MIGRAINE
     Dosage: SOLUTION SUBCUTANEOUS,PREFILLED AUTO?INJECTOR
     Route: 065
  6. AIMOVIG [Suspect]
     Active Substance: ERENUMAB-AOOE
     Indication: MIGRAINE
     Dosage: PREFILLED AUTO?INJECTOR
     Route: 065
  7. TOPIRAMATE. [Suspect]
     Active Substance: TOPIRAMATE
     Indication: MIGRAINE
     Route: 065
  8. TOPIRAMATE. [Suspect]
     Active Substance: TOPIRAMATE
     Indication: MIGRAINE
     Dosage: NOT SPECIFIED
     Route: 065

REACTIONS (15)
  - Epilepsy [Unknown]
  - Concussion [Unknown]
  - Drug dependence [Unknown]
  - Balance disorder [Unknown]
  - Blood pressure abnormal [Unknown]
  - Generalised tonic-clonic seizure [Unknown]
  - Decreased nasolabial fold [Unknown]
  - Head injury [Unknown]
  - Petit mal epilepsy [Unknown]
  - Seizure [Unknown]
  - Dizziness [Unknown]
  - Amnesia [Unknown]
  - Migraine [Unknown]
  - Headache [Unknown]
  - Product dose omission issue [Unknown]
